FAERS Safety Report 7103186-3 (Version None)
Quarter: 2010Q4

REPORT INFORMATION
  Report Type: 
  Country: None (occurrence: None)
  Receive Date: 20101115
  Receipt Date: 20101110
  Transmission Date: 20110411
  Serious: Yes (Other)
  Sender: FDA-Public Use
  Company Number: ES-MERCK-1011ESP00004

PATIENT
  Age: 37 Year
  Sex: Female

DRUGS (4)
  1. SINGULAIR [Suspect]
     Indication: ASTHMA
     Route: 048
     Dates: start: 20080901, end: 20100707
  2. SPIRIVA [Concomitant]
     Indication: ASTHMA
     Route: 055
     Dates: end: 20100401
  3. RILAST [Concomitant]
     Indication: ASTHMA
     Route: 055
  4. AVAMYS [Concomitant]
     Indication: SINUSITIS
     Route: 055

REACTIONS (6)
  - ANXIETY [None]
  - CHEST PAIN [None]
  - DYSPNOEA [None]
  - HEADACHE [None]
  - HEPATITIS [None]
  - NORMOCHROMIC NORMOCYTIC ANAEMIA [None]
